FAERS Safety Report 5755654-4 (Version None)
Quarter: 2008Q2

REPORT INFORMATION
  Report Type: 
  Country: None (occurrence: None)
  Receive Date: 20080528
  Receipt Date: 20080521
  Transmission Date: 20081010
  Serious: Yes (Other)
  Sender: FDA-Public Use
  Company Number: CERZ-1000122

PATIENT
  Sex: Female

DRUGS (3)
  1. CEREZYME [Suspect]
     Indication: GAUCHER'S DISEASE
     Dosage: 1400 U, Q2W, INTRAVENOUS; 800 U, Q2W, INTRAVENOUS; 1800 U, Q2W,  INTRAVENOUS
     Route: 042
     Dates: start: 19990413
  2. CEREZYME [Suspect]
     Indication: GAUCHER'S DISEASE
     Dosage: 1400 U, Q2W, INTRAVENOUS; 800 U, Q2W, INTRAVENOUS; 1800 U, Q2W,  INTRAVENOUS
     Route: 042
     Dates: start: 20050101
  3. CEREZYME [Suspect]
     Indication: GAUCHER'S DISEASE
     Dosage: 1400 U, Q2W, INTRAVENOUS; 800 U, Q2W, INTRAVENOUS; 1800 U, Q2W,  INTRAVENOUS
     Route: 042
     Dates: start: 20080301

REACTIONS (1)
  - BREAST CANCER [None]
